FAERS Safety Report 11696100 (Version 1)
Quarter: 2015Q4

REPORT INFORMATION
  Report Type: Spontaneous
  Country: US (occurrence: None)
  Receive Date: 20151103
  Receipt Date: 20151103
  Transmission Date: 20160304
  Serious: Yes (Disabling, Other)
  Sender: FDA-Public Use
  Company Number: None

PATIENT
  Age: 60 Year
  Sex: Female
  Weight: 68.04 kg

DRUGS (6)
  1. VITAMIN C [Concomitant]
     Active Substance: ASCORBIC ACID
  2. TECFIDERA [Suspect]
     Active Substance: DIMETHYL FUMARATE
     Indication: RELAPSING-REMITTING MULTIPLE SCLEROSIS
     Dosage: 2 PILLS
     Route: 048
     Dates: start: 20130924, end: 20131215
  3. VITAMIN D [Concomitant]
     Active Substance: CHOLECALCIFEROL
  4. BACLOFEN. [Concomitant]
     Active Substance: BACLOFEN
  5. CEPHALEXIN. [Concomitant]
     Active Substance: CEPHALEXIN
  6. SPIRONOLACTONE. [Concomitant]
     Active Substance: SPIRONOLACTONE

REACTIONS (11)
  - Tremor [None]
  - Melaena [None]
  - Nausea [None]
  - Diarrhoea [None]
  - Dyspepsia [None]
  - Vomiting [None]
  - Faeces discoloured [None]
  - Malaise [None]
  - Abdominal pain upper [None]
  - Feeling abnormal [None]
  - Muscle spasms [None]

NARRATIVE: CASE EVENT DATE: 20131007
